FAERS Safety Report 12742136 (Version 1)
Quarter: 2016Q3

REPORT INFORMATION
  Report Type: Other
  Country: US (occurrence: US)
  Receive Date: 20160914
  Receipt Date: 20160914
  Transmission Date: 20161109
  Serious: Yes (Hospitalization)
  Sender: FDA-Public Use
  Company Number: US-B. BRAUN MEDICAL INC.-1057307

PATIENT
  Age: 75 Year
  Sex: Male

DRUGS (6)
  1. HEPARIN SODIUM AND DEXTROSE [Suspect]
     Active Substance: HEPARIN SODIUM
  2. HEPARIN [Suspect]
     Active Substance: HEPARIN SODIUM
     Route: 058
  3. OXYGEN. [Concomitant]
     Active Substance: OXYGEN
  4. WARFARIN SODIUM. [Concomitant]
     Active Substance: WARFARIN SODIUM
  5. ARGATROBAN. [Concomitant]
     Active Substance: ARGATROBAN
  6. UFH [Concomitant]
     Active Substance: HEPARIN SODIUM
     Route: 040

REACTIONS (6)
  - Skin necrosis [None]
  - Gangrene [None]
  - Ischaemia [None]
  - Deep vein thrombosis [None]
  - Pulmonary embolism [None]
  - Heparin-induced thrombocytopenia [None]
